FAERS Safety Report 14178686 (Version 1)
Quarter: 2017Q4

REPORT INFORMATION
  Report Type: Spontaneous
  Country: US (occurrence: US)
  Receive Date: 20171110
  Receipt Date: 20171110
  Transmission Date: 20180321
  Serious: Yes (Death, Other)
  Sender: FDA-Public Use
  Company Number: US-ASTELLAS-2017US045630

PATIENT
  Age: 8 Month
  Sex: Female

DRUGS (8)
  1. PREDNISONE. [Suspect]
     Active Substance: PREDNISONE
     Indication: LIVER TRANSPLANT
     Dosage: UNK UNK, UNKNOWN FREQ.
     Route: 065
  2. TACROLIMUS. [Suspect]
     Active Substance: TACROLIMUS
     Indication: INTESTINAL TRANSPLANT
  3. PREDNISONE. [Suspect]
     Active Substance: PREDNISONE
     Indication: TRANSPLANT
  4. TACROLIMUS. [Suspect]
     Active Substance: TACROLIMUS
     Indication: LIVER TRANSPLANT
     Dosage: UNK UNK, UNKNOWN FREQUENCY, MAINTAINED AROUND 5 NG/ML
     Route: 065
  5. TACROLIMUS. [Suspect]
     Active Substance: TACROLIMUS
     Indication: PANCREAS TRANSPLANT
  6. TACROLIMUS. [Suspect]
     Active Substance: TACROLIMUS
     Indication: TRANSPLANT
  7. PREDNISONE. [Suspect]
     Active Substance: PREDNISONE
     Indication: INTESTINAL TRANSPLANT
  8. PREDNISONE. [Suspect]
     Active Substance: PREDNISONE
     Indication: PANCREAS TRANSPLANT

REACTIONS (11)
  - Smooth muscle cell neoplasm [Unknown]
  - Hepatocellular carcinoma [Unknown]
  - Off label use [Unknown]
  - Abdominal compartment syndrome [Unknown]
  - Death [Fatal]
  - Complications of intestinal transplant [Unknown]
  - Epstein-Barr viraemia [Recovered/Resolved]
  - Epstein-Barr virus infection [Unknown]
  - Epstein-Barr virus infection [Not Recovered/Not Resolved]
  - Post transplant lymphoproliferative disorder [Recovering/Resolving]
  - Transplant rejection [Unknown]
